FAERS Safety Report 8034258-7 (Version None)
Quarter: 2012Q1

REPORT INFORMATION
  Report Type: 
  Country: None (occurrence: None)
  Receive Date: 20120110
  Receipt Date: 20120104
  Transmission Date: 20120608
  Serious: Yes (Other)
  Sender: FDA-Public Use
  Company Number: PHEH2008US06153

PATIENT
  Sex: Female

DRUGS (21)
  1. ESTRADERM [Suspect]
  2. RIFAMPIN [Concomitant]
     Dosage: 600 MG, UNK
  3. MYAMBUTOL [Concomitant]
     Dosage: 400 MG, QID
  4. FOSAMAX [Concomitant]
  5. BETACAROTENE [Concomitant]
  6. TENORMIN [Concomitant]
  7. VASOTEC [Concomitant]
  8. PREDNISONE TAB [Concomitant]
  9. BIAXIN [Concomitant]
     Dosage: 250 MG, BID
  10. PROVERA [Concomitant]
  11. PREMARIN [Concomitant]
  12. VERAPAMIL [Concomitant]
  13. FAMVIR                                  /NET/ [Concomitant]
  14. AUGMENTIN BID [Concomitant]
  15. DEMEROL [Concomitant]
  16. ZITHROMAX [Concomitant]
     Dosage: 250 MG, UNK
  17. COZAAR [Concomitant]
     Dosage: 50 MG, UNK
  18. CORTICOSTEROIDS [Concomitant]
  19. VERSED [Concomitant]
  20. TOPICAL EYE DROP [Concomitant]
  21. ATENOLOL [Concomitant]

REACTIONS (47)
  - HERPES SIMPLEX OPHTHALMIC [None]
  - GASTROINTESTINAL HAEMORRHAGE [None]
  - DIVERTICULUM [None]
  - PECTUS EXCAVATUM [None]
  - LUNG NEOPLASM [None]
  - BLINDNESS [None]
  - FATIGUE [None]
  - PAIN [None]
  - DISABILITY [None]
  - CLUSTER HEADACHE [None]
  - COUGH [None]
  - RASH PRURITIC [None]
  - LUNG INFECTION [None]
  - BRONCHIECTASIS [None]
  - BACTERIURIA [None]
  - SKIN LESION [None]
  - EMOTIONAL DISORDER [None]
  - SUPRAVENTRICULAR TACHYCARDIA [None]
  - HYPOKALAEMIA [None]
  - HYPOMAGNESAEMIA [None]
  - SINUSITIS [None]
  - TETANUS [None]
  - SYNCOPE [None]
  - ANXIETY [None]
  - SCAR [None]
  - URINE ODOUR ABNORMAL [None]
  - KYPHOSIS [None]
  - SCOLIOSIS [None]
  - LUNG DISORDER [None]
  - ANAEMIA [None]
  - DIVERTICULITIS [None]
  - DERMATITIS CONTACT [None]
  - FIBROMYALGIA [None]
  - CARDIOMEGALY [None]
  - AORTIC DISORDER [None]
  - HAEMATOMA [None]
  - OROPHARYNGEAL PAIN [None]
  - VAGINAL DISCHARGE [None]
  - RECTAL HAEMORRHAGE [None]
  - DIVERTICULAR PERFORATION [None]
  - RHINITIS ALLERGIC [None]
  - OSTEOPENIA [None]
  - HEPATIC CYST [None]
  - URINARY TRACT INFECTION [None]
  - BREAST CANCER [None]
  - LEFT VENTRICULAR DYSFUNCTION [None]
  - POLYMYALGIA RHEUMATICA [None]
